FAERS Safety Report 23752031 (Version 1)
Quarter: 2024Q2

REPORT INFORMATION
  Report Type: Spontaneous
  Country: US (occurrence: US)
  Receive Date: 20240417
  Receipt Date: 20240417
  Transmission Date: 20240716
  Serious: No
  Sender: FDA-Public Use
  Company Number: US-BIOGEN-2021BI01061874

PATIENT
  Age: 71 Year
  Sex: Male

DRUGS (2)
  1. VUMERITY [Suspect]
     Active Substance: DIROXIMEL FUMARATE
     Indication: Multiple sclerosis
     Dosage: 2-231 MG CAPSULES
     Route: 050
     Dates: start: 20210111
  2. TUMS [Concomitant]
     Active Substance: CALCIUM CARBONATE
     Route: 050

REACTIONS (3)
  - Prescribed overdose [Not Recovered/Not Resolved]
  - Bradyphrenia [Unknown]
  - Confusional state [Unknown]

NARRATIVE: CASE EVENT DATE: 20210501
